FAERS Safety Report 24583257 (Version 2)
Quarter: 2024Q4

REPORT INFORMATION
  Report Type: Spontaneous
  Country: JP (occurrence: JP)
  Receive Date: 20241106
  Receipt Date: 20241212
  Transmission Date: 20250114
  Serious: Yes (Other)
  Sender: EXELIXIS
  Company Number: JP-TAKEDA-2024TJP015876

PATIENT
  Sex: Male

DRUGS (1)
  1. CABOMETYX [Suspect]
     Active Substance: CABOZANTINIB S-MALATE
     Indication: Renal cell carcinoma
     Dosage: 40 MILLIGRAM, QD
     Route: 048

REACTIONS (1)
  - Nephrotic syndrome [Unknown]
